FAERS Safety Report 7956552-8 (Version None)
Quarter: 2011Q4

REPORT INFORMATION
  Report Type: 
  Country: None (occurrence: None)
  Receive Date: 20111205
  Receipt Date: 20111130
  Transmission Date: 20120403
  Serious: Yes (Life-Threatening, Hospitalization, Other)
  Sender: FDA-Public Use
  Company Number: GB-PFIZER INC-2011209554

PATIENT
  Age: 6 Month
  Sex: Male
  Weight: 7.6 kg

DRUGS (8)
  1. REFACTO [Suspect]
     Indication: CENTRAL VENOUS CATHETERISATION
     Dosage: UNK
     Route: 040
     Dates: start: 20110825, end: 20110826
  2. PARACETAMOL [Concomitant]
     Indication: PAIN
     Dosage: 120 MG, AS NEEDED
     Route: 048
     Dates: start: 20110814, end: 20110828
  3. MOVIPREP [Concomitant]
     Indication: CONSTIPATION
     Dosage: 1/2 SACHET, 2X/DAY
     Route: 048
     Dates: start: 20110821, end: 20110828
  4. PHENYTOIN [Concomitant]
     Indication: CONVULSION
     Dosage: 3.75 MG, 2X/DAY
     Route: 048
     Dates: start: 20110815
  5. REFACTO [Suspect]
     Indication: CEREBRAL HAEMORRHAGE
     Dosage: CONTINUOUS INFUSION UP TO 62.5 UNITS
     Route: 042
     Dates: start: 20110814, end: 20110825
  6. REFACTO [Suspect]
     Dosage: UNK
     Route: 042
     Dates: start: 20110826, end: 20110828
  7. LACTULOSE [Concomitant]
     Indication: CONSTIPATION
     Dosage: 2.5 ML, UNK
     Route: 048
     Dates: start: 20110819, end: 20110828
  8. CLOTRIMAZOLE [Concomitant]
     Indication: CANDIDIASIS
     Dosage: 1 ML, 3X/DAY
     Route: 061
     Dates: start: 20110817, end: 20110828

REACTIONS (2)
  - FACTOR VIII INHIBITION [None]
  - HYPERSENSITIVITY [None]
